FAERS Safety Report 5699348-2 (Version None)
Quarter: 2008Q2

REPORT INFORMATION
  Report Type: 
  Country: None (occurrence: None)
  Receive Date: 20080404
  Receipt Date: 20080402
  Transmission Date: 20081010
  Serious: Yes (Other)
  Sender: FDA-Public Use
  Company Number: S08-USA-00677-01

PATIENT
  Age: 76 Year
  Sex: Male

DRUGS (11)
  1. LEXAPRO [Suspect]
     Indication: DEPRESSION
     Dosage: 10 MG QD PO
     Route: 048
     Dates: start: 20070101, end: 20080101
  2. LEXAPRO [Suspect]
     Indication: DEPRESSION
     Dosage: 2.5 MG QD PO
     Route: 048
     Dates: start: 20080204, end: 20080208
  3. LEXAPRO [Suspect]
     Indication: DEPRESSION
     Dosage: 2.5  MG QOD PO
     Route: 048
     Dates: start: 20080209, end: 20080217
  4. LEXAPRO [Suspect]
     Indication: DEPRESSION
     Dosage: 5  MG QD PO
     Route: 048
     Dates: start: 20070201, end: 20070101
  5. BENICAR HCT (OLMERARTAN/HYDROCHLOROTHIAZIDE) [Concomitant]
  6. ARICEPT [Concomitant]
  7. MELOXICAM [Concomitant]
  8. ASPIRIN [Concomitant]
  9. VYTORIN [Concomitant]
  10. PROTONIX [Concomitant]
  11. AMBIEN [Concomitant]

REACTIONS (7)
  - ANGER [None]
  - BLOOD PRESSURE DECREASED [None]
  - HYPERHIDROSIS [None]
  - IRRITABILITY [None]
  - PANIC ATTACK [None]
  - TREMOR [None]
  - WITHDRAWAL SYNDROME [None]
